APPROVED DRUG PRODUCT: THIOTEPA
Active Ingredient: THIOTEPA
Strength: 15MG/VIAL
Dosage Form/Route: POWDER;INTRACAVITARY, INTRAVENOUS, INTRAVESICAL
Application: A214222 | Product #001 | TE Code: AP
Applicant: GLAND PHARMA LTD
Approved: Mar 8, 2021 | RLD: No | RS: No | Type: RX